FAERS Safety Report 7244455-6 (Version None)
Quarter: 2011Q1

REPORT INFORMATION
  Report Type: 
  Country: None (occurrence: None)
  Receive Date: 20110125
  Receipt Date: 20110118
  Transmission Date: 20110831
  Serious: Yes (Other)
  Sender: FDA-Public Use
  Company Number: US-PFIZER INC-2011012450

PATIENT
  Sex: Male
  Weight: 120.18 kg

DRUGS (5)
  1. LYRICA [Suspect]
     Indication: NEUROPATHY PERIPHERAL
     Dosage: 100 MG, 2X/DAY
     Route: 048
  2. LISINOPRIL AND HYDROCHLOROTHIAZIDE [Concomitant]
     Indication: ANTICOAGULANT THERAPY
     Dosage: 20/125MG DAILY
     Route: 048
  3. SITAGLIPTIN [Concomitant]
     Indication: ANTIPLATELET THERAPY
     Dosage: 50 MG, 1X/DAY
     Route: 048
  4. LOVASTATIN [Concomitant]
     Dosage: 40 MG, 1X/DAY
     Route: 048
  5. GLIMEPIRIDE [Interacting]
     Indication: TYPE 2 DIABETES MELLITUS
     Dosage: 2 MG, 2X/DAY
     Route: 048
     Dates: start: 20101201

REACTIONS (2)
  - HYPOGLYCAEMIA [None]
  - DRUG INTERACTION [None]
